FAERS Safety Report 5425779-1 (Version None)
Quarter: 2007Q3

REPORT INFORMATION
  Report Type: 
  Country: None (occurrence: None)
  Receive Date: 20070825
  Receipt Date: 20070814
  Transmission Date: 20080115
  Serious: Yes (Hospitalization)
  Sender: FDA-Public Use
  Company Number: IT-MERCK-0708ITA00021

PATIENT
  Age: 83 Year
  Sex: Male

DRUGS (1)
  1. FOSAMAX PLUS D [Suspect]
     Indication: FEMUR FRACTURE
     Route: 048
     Dates: start: 20070605, end: 20070605

REACTIONS (12)
  - ABDOMINAL PAIN [None]
  - ABDOMINAL PAIN UPPER [None]
  - DETOXIFICATION [None]
  - HEPATIC PAIN [None]
  - INTENTIONAL DRUG MISUSE [None]
  - JOINT SWELLING [None]
  - PALPITATIONS [None]
  - PLATELET COUNT DECREASED [None]
  - RED BLOOD CELL COUNT DECREASED [None]
  - SKIN DISCOLOURATION [None]
  - WEIGHT DECREASED [None]
  - WHITE BLOOD CELL COUNT DECREASED [None]
